FAERS Safety Report 13239226 (Version 1)
Quarter: 2017Q1

REPORT INFORMATION
  Report Type: Spontaneous
  Country: US (occurrence: US)
  Receive Date: 20170216
  Receipt Date: 20170216
  Transmission Date: 20170428
  Serious: Yes (Other)
  Sender: FDA-Public Use
  Company Number: US-PFIZER INC-2017063542

PATIENT
  Sex: Female

DRUGS (1)
  1. METHYLPREDNISOLONE. [Suspect]
     Active Substance: METHYLPREDNISOLONE
     Indication: MITOCHONDRIAL CYTOPATHY
     Dosage: 2MG TABLETS AND SHE HAS TO BREAK IT INTO QUARTERS TO TAKE HER DOSE

REACTIONS (3)
  - Skin atrophy [Unknown]
  - Infection susceptibility increased [Unknown]
  - Product use issue [Unknown]
